FAERS Safety Report 20257941 (Version 1)
Quarter: 2021Q4

REPORT INFORMATION
  Report Type: Spontaneous
  Country: JP (occurrence: None)
  Receive Date: 20211230
  Receipt Date: 20211230
  Transmission Date: 20220303
  Serious: Yes (Other)
  Sender: FDA-Public Use
  Company Number: 2021A901753

PATIENT
  Sex: Female

DRUGS (1)
  1. PULMICORT TURBUHALER [Suspect]
     Active Substance: BUDESONIDE
     Indication: Cough variant asthma
     Dosage: DOSE UNKNOWN
     Route: 055

REACTIONS (3)
  - Lung disorder [Unknown]
  - Cardiomyopathy [Unknown]
  - Cough [Unknown]

NARRATIVE: CASE EVENT DATE: 20210101
